FAERS Safety Report 5944817-0 (Version None)
Quarter: 2008Q4

REPORT INFORMATION
  Report Type: 
  Country: None (occurrence: None)
  Receive Date: 20081107
  Receipt Date: 20081027
  Transmission Date: 20090506
  Serious: No
  Sender: FDA-Public Use
  Company Number: US-BAYER-200814205BCC

PATIENT
  Age: 77 Year
  Sex: Female
  Weight: 64 kg

DRUGS (4)
  1. ALEVE [Suspect]
     Indication: SPINAL COLUMN STENOSIS
     Dosage: TOTAL DAILY DOSE: 220 MG  UNIT DOSE: 220 MG
     Dates: start: 20081022
  2. ALEVE [Suspect]
     Dosage: TOTAL DAILY DOSE: 220 MG  UNIT DOSE: 220 MG
     Dates: start: 20081014, end: 20081016
  3. FOSAMAX [Concomitant]
  4. CENTRUM SILVER [Concomitant]

REACTIONS (2)
  - RASH [None]
  - URTICARIA [None]
